FAERS Safety Report 8578667-6 (Version None)
Quarter: 2012Q3

REPORT INFORMATION
  Report Type: 
  Country: None (occurrence: None)
  Receive Date: 20120801
  Receipt Date: 20120801
  Transmission Date: 20120928
  Serious: Yes (Other)
  Sender: FDA-Public Use
  Company Number: None

PATIENT
  Age: 56 Year
  Sex: Female
  Weight: 73 kg

DRUGS (7)
  1. AMBIEN [Concomitant]
  2. HYDROCHLOROTHIAZIDE [Concomitant]
  3. ESTRADIOL [Concomitant]
  4. NTG AGELESS RESTORATIVES ANTI-OXIDANT MOIS [Suspect]
     Indication: THERAPEUTIC SKIN CARE TOPICAL
     Dosage: UNK, TWO TIMES, TOPICAL
     Route: 061
     Dates: end: 20120115
  5. BUSPIRON [Concomitant]
  6. LISINOPRIL [Concomitant]
  7. NTG AGELESS RESTORATIVES ANTI-OXIDANT NIGH [Suspect]
     Indication: THERAPEUTIC SKIN CARE TOPICAL
     Dosage: UNK, TWO TIMES, TOPICAL
     Route: 061
     Dates: end: 20120115

REACTIONS (11)
  - PRURITUS GENERALISED [None]
  - BLISTER [None]
  - SWELLING FACE [None]
  - BURNING SENSATION [None]
  - HEADACHE [None]
  - DYSPNOEA [None]
  - DRY EYE [None]
  - DERMATITIS CONTACT [None]
  - EYE SWELLING [None]
  - HOT FLUSH [None]
  - DRY SKIN [None]
